FAERS Safety Report 6260113-9 (Version None)
Quarter: 2009Q3

REPORT INFORMATION
  Report Type: 
  Country: None (occurrence: None)
  Receive Date: 20090708
  Receipt Date: 20090626
  Transmission Date: 20100115
  Serious: Yes (Other)
  Sender: FDA-Public Use
  Company Number: BE-ELI_LILLY_AND_COMPANY-BE200904004706

PATIENT
  Sex: Male
  Weight: 113 kg

DRUGS (7)
  1. BYETTA [Suspect]
     Indication: TYPE 2 DIABETES MELLITUS
     Dosage: 10 UG, 2/D
     Route: 065
     Dates: start: 20081105, end: 20090423
  2. GLUCOPHAGE [Concomitant]
  3. AMLOR [Concomitant]
  4. IRBESARTAN [Concomitant]
  5. LIPITOR [Concomitant]
  6. SELOZOK [Concomitant]
  7. PANTOZOL [Concomitant]

REACTIONS (4)
  - AGGRESSION [None]
  - DEPRESSION [None]
  - FOOD AVERSION [None]
  - WEIGHT DECREASED [None]
